FAERS Safety Report 13666724 (Version 1)
Quarter: 2017Q2

REPORT INFORMATION
  Report Type: Spontaneous
  Country: US (occurrence: US)
  Receive Date: 20170619
  Receipt Date: 20170619
  Transmission Date: 20170830
  Serious: No
  Sender: FDA-Public Use
  Company Number: US-ROCHE-1504769

PATIENT
  Age: 64 Year
  Sex: Male

DRUGS (3)
  1. XELODA [Suspect]
     Active Substance: CAPECITABINE
     Indication: RECTAL CANCER
     Dosage: BID X 14
     Route: 048
     Dates: start: 20140308
  2. ATENOLOL. [Concomitant]
     Active Substance: ATENOLOL
  3. LANOXIN [Concomitant]
     Active Substance: DIGOXIN

REACTIONS (4)
  - Dry skin [Recovering/Resolving]
  - Dry mouth [Not Recovered/Not Resolved]
  - Asthenia [Recovering/Resolving]
  - Skin fissures [Recovering/Resolving]

NARRATIVE: CASE EVENT DATE: 201410
